FAERS Safety Report 18185659 (Version 1)
Quarter: 2020Q3

REPORT INFORMATION
  Report Type: Spontaneous
  Country: US (occurrence: US)
  Receive Date: 20200821
  Receipt Date: 20200821
  Transmission Date: 20201103
  Serious: Yes (Death, Hospitalization)
  Sender: FDA-Public Use
  Company Number: None

PATIENT
  Age: 63 Year
  Sex: Female
  Weight: 52.4 kg

DRUGS (6)
  1. DOXORUBICIN HYDROCHLORIDE. [Suspect]
     Active Substance: DOXORUBICIN HYDROCHLORIDE
     Dates: end: 20200417
  2. CYCLOPHOSPHAMIDE. [Suspect]
     Active Substance: CYCLOPHOSPHAMIDE
     Dates: end: 20200418
  3. VINCRISTINE SULFATE. [Suspect]
     Active Substance: VINCRISTINE SULFATE
     Dates: end: 20200417
  4. PREDNISONE. [Suspect]
     Active Substance: PREDNISONE
     Dates: end: 20200418
  5. ETOPOSIDE (VP? 16) [Suspect]
     Active Substance: ETOPOSIDE
     Dates: end: 20200417
  6. RITUXIMAB (MOAB C2B8 ANTI CD20, CHIMERIC) [Suspect]
     Active Substance: RITUXIMAB

REACTIONS (6)
  - Oesophagitis [None]
  - Multiple organ dysfunction syndrome [None]
  - Gastrointestinal haemorrhage [None]
  - Fungaemia [None]
  - Acute hepatic failure [None]
  - Helicobacter infection [None]

NARRATIVE: CASE EVENT DATE: 20200428
